FAERS Safety Report 6241823-6 (Version None)
Quarter: 2009Q2

REPORT INFORMATION
  Report Type: 
  Country: None (occurrence: None)
  Receive Date: 20090623
  Receipt Date: 20090613
  Transmission Date: 20091009
  Serious: Yes (Other)
  Sender: FDA-Public Use
  Company Number: JP-PFIZER INC-2009230307

PATIENT
  Age: 35 Year

DRUGS (2)
  1. ZOLOFT [Suspect]
     Dosage: 100 MG, 1X/DAY
     Route: 048
  2. MYSLEE [Concomitant]
     Indication: INSOMNIA
     Route: 048

REACTIONS (2)
  - BLEPHAROSPASM [None]
  - LOSS OF CONSCIOUSNESS [None]
